FAERS Safety Report 4447153-7 (Version None)
Quarter: 2004Q3

REPORT INFORMATION
  Report Type: 
  Country: None (occurrence: None)
  Receive Date: 20040813
  Receipt Date: 20040608
  Transmission Date: 20050211
  Serious: No
  Sender: FDA-Public Use
  Company Number: S04-USA-03635-01

PATIENT
  Age: 88 Year
  Sex: Female

DRUGS (14)
  1. NAMENDA [Suspect]
     Indication: DEMENTIA ALZHEIMER'S TYPE
  2. NAMENDA [Suspect]
     Indication: DEMENTIA ALZHEIMER'S TYPE
     Dosage: 10 MG BID PO
     Route: 048
  3. RESTORIL [Concomitant]
  4. REMERON [Concomitant]
  5. REGLAN [Concomitant]
  6. ULTRACET [Concomitant]
  7. ALBUTEROL [Concomitant]
  8. EXELON [Concomitant]
  9. MOBIC [Concomitant]
  10. ZESTRIL [Concomitant]
  11. PREVACID [Concomitant]
  12. ADVAIR DISKUS 100/50 [Concomitant]
  13. LASIX [Concomitant]
  14. POTASSIUM CHLORIDE [Concomitant]

REACTIONS (1)
  - POLLAKIURIA [None]
